FAERS Safety Report 8260725-7 (Version None)
Quarter: 2012Q2

REPORT INFORMATION
  Report Type: 
  Country: None (occurrence: None)
  Receive Date: 20120405
  Receipt Date: 20120330
  Transmission Date: 20120825
  Serious: Yes (Hospitalization)
  Sender: FDA-Public Use
  Company Number: US-BIOGENIDEC-2012BI002214

PATIENT
  Age: 45 Year
  Sex: Female

DRUGS (13)
  1. SIMVASTATIN [Concomitant]
     Indication: BLOOD CHOLESTEROL
  2. SYNTHROID [Concomitant]
     Indication: HYPOTHYROIDISM
     Dates: start: 20080101
  3. REMERON [Concomitant]
     Indication: DEPRESSION
  4. MEDICATIONS (NOS) [Concomitant]
  5. TERACETOPOL (NOS) [Concomitant]
     Indication: CARDIAC DISORDER
  6. VITAMIN D [Concomitant]
     Indication: ROUTINE HEALTH MAINTENANCE
  7. RANOCAL (NOS) [Concomitant]
     Indication: CARDIAC DISORDER
  8. TRAMADOL HCL [Concomitant]
     Indication: PAIN
  9. AVONEX [Suspect]
     Route: 030
     Dates: start: 20070808, end: 20071001
  10. AVONEX [Suspect]
     Indication: MULTIPLE SCLEROSIS
     Route: 030
     Dates: start: 19990701, end: 20070101
  11. AVONEX [Suspect]
     Route: 030
     Dates: start: 20090109
  12. ZOCOR [Concomitant]
     Indication: BLOOD CHOLESTEROL
  13. IRON [Concomitant]
     Indication: ROUTINE HEALTH MAINTENANCE

REACTIONS (22)
  - RENAL FAILURE [None]
  - SKIN EXFOLIATION [None]
  - FALL [None]
  - HYPOVOLAEMIA [None]
  - HEAD INJURY [None]
  - CONTUSION [None]
  - GAIT DISTURBANCE [None]
  - URINARY RETENTION [None]
  - INSOMNIA [None]
  - DRUG HYPERSENSITIVITY [None]
  - MULTIPLE SCLEROSIS RELAPSE [None]
  - SWELLING FACE [None]
  - BLISTER [None]
  - CARDIAC DISORDER [None]
  - BLOOD POTASSIUM INCREASED [None]
  - DISORIENTATION [None]
  - AMNESIA [None]
  - HYPERTENSION [None]
  - BLADDER PROLAPSE [None]
  - COGNITIVE DISORDER [None]
  - THYROID NEOPLASM [None]
  - ANXIETY [None]
